FAERS Safety Report 17174520 (Version 1)
Quarter: 2019Q4

REPORT INFORMATION
  Report Type: Spontaneous
  Country: US (occurrence: US)
  Receive Date: 20191219
  Receipt Date: 20191219
  Transmission Date: 20200122
  Serious: No
  Sender: FDA-Public Use
  Company Number: US-UCBSA-2014002936

PATIENT

DRUGS (1)
  1. CIMZIA [Suspect]
     Active Substance: CERTOLIZUMAB PEGOL
     Dosage: 400 MG, MONTHLY (QM)
     Route: 064
     Dates: end: 2014

REACTIONS (2)
  - Maternal exposure during pregnancy [Unknown]
  - Measles [Unknown]

NARRATIVE: CASE EVENT DATE: 2014
